FAERS Safety Report 25828044 (Version 1)
Quarter: 2025Q3

REPORT INFORMATION
  Report Type: Spontaneous
  Country: US (occurrence: US)
  Receive Date: 20250921
  Receipt Date: 20250921
  Transmission Date: 20251021
  Serious: Yes (Hospitalization, Other)
  Sender: B. BRAUN MEDICAL INC.
  Company Number: US-BBM-US-BBM-202501982

PATIENT
  Age: 75 Year
  Sex: Male

DRUGS (11)
  1. AMINO ACIDS, SOURCE UNSPECIFIED [Interacting]
     Active Substance: AMINO ACIDS, SOURCE UNSPECIFIED
     Indication: Nutritional supplementation
  2. ACETAMINOPHEN [Suspect]
     Active Substance: ACETAMINOPHEN
     Indication: Pyrexia
  3. PROTEIN [Interacting]
     Active Substance: PROTEIN
     Indication: Nutritional supplementation
  4. PROTEIN [Interacting]
     Active Substance: PROTEIN
  5. PROTEIN [Interacting]
     Active Substance: PROTEIN
  6. PROTEIN [Interacting]
     Active Substance: PROTEIN
  7. PROTEIN [Interacting]
     Active Substance: PROTEIN
  8. CARBIDOPA AND LEVODOPA [Interacting]
     Active Substance: CARBIDOPA\LEVODOPA
     Indication: Parkinson^s disease
  9. CARBIDOPA AND LEVODOPA [Interacting]
     Active Substance: CARBIDOPA\LEVODOPA
  10. HYDROMORPHONE [Concomitant]
     Active Substance: HYDROMORPHONE
  11. PANTOPRAZOLE [Interacting]
     Active Substance: PANTOPRAZOLE
     Indication: Stress ulcer

REACTIONS (3)
  - Parkinsonism hyperpyrexia syndrome [Recovered/Resolved]
  - Drug interaction [Recovered/Resolved]
  - Drug ineffective [Recovered/Resolved]
